FAERS Safety Report 12241987 (Version 1)
Quarter: 2016Q2

REPORT INFORMATION
  Report Type: Spontaneous
  Country: US (occurrence: None)
  Receive Date: 20160405
  Receipt Date: 20160405
  Transmission Date: 20160815
  Serious: No
  Sender: FDA-Public Use
  Company Number: None

PATIENT
  Age: 72 Year
  Sex: Female
  Weight: 76.2 kg

DRUGS (15)
  1. IMATINIB MES TAB 400 MG SUN PHARMACEUTICAL INDUSTRIES [Suspect]
     Active Substance: IMATINIB MESYLATE
     Indication: CHRONIC MYELOID LEUKAEMIA
     Route: 048
  2. SUCRALFATE. [Concomitant]
     Active Substance: SUCRALFATE
  3. METOPROLOL. [Concomitant]
     Active Substance: METOPROLOL
  4. ATORVASTATIN [Concomitant]
     Active Substance: ATORVASTATIN
  5. CITALOPRAM [Concomitant]
     Active Substance: CITALOPRAM HYDROBROMIDE
  6. FOLIC ACID. [Concomitant]
     Active Substance: FOLIC ACID
  7. VITAMIN 50,000 [Concomitant]
  8. OMEAZOLE [Concomitant]
  9. GLEEVEC [Concomitant]
     Active Substance: IMATINIB MESYLATE
  10. KLOR-CON [Concomitant]
     Active Substance: POTASSIUM CHLORIDE
  11. IMODIUM [Concomitant]
     Active Substance: LOPERAMIDE HYDROCHLORIDE
  12. ASPRIN [Concomitant]
     Active Substance: ASPIRIN
  13. MEGNESIUM [Concomitant]
  14. C-PAP [Concomitant]
  15. CLONAZEPAM. [Concomitant]
     Active Substance: CLONAZEPAM

REACTIONS (1)
  - Malaise [None]

NARRATIVE: CASE EVENT DATE: 20160215
